FAERS Safety Report 14573991 (Version 1)
Quarter: 2018Q1

REPORT INFORMATION
  Report Type: Report from Study
  Country: US (occurrence: US)
  Receive Date: 20180226
  Receipt Date: 20180226
  Transmission Date: 20180509
  Serious: Yes (Other)
  Sender: FDA-Public Use
  Company Number: US-PFIZER INC-2018077139

PATIENT
  Age: 31 Year
  Sex: Female

DRUGS (1)
  1. VINCRISTINE SULFATE. [Suspect]
     Active Substance: VINCRISTINE SULFATE
     Indication: LYMPHOMA
     Dosage: 2 MG, UNK

REACTIONS (2)
  - Toxic neuropathy [Unknown]
  - Condition aggravated [Unknown]
